FAERS Safety Report 4411405-7 (Version None)
Quarter: 2004Q2

REPORT INFORMATION
  Report Type: 
  Country: None (occurrence: None)
  Receive Date: 20040630
  Receipt Date: 20040309
  Transmission Date: 20050107
  Serious: No
  Sender: FDA-Public Use
  Company Number: 04P-163-0251135-00

PATIENT
  Age: 74 Year
  Sex: Female
  Weight: 97.5234 kg

DRUGS (13)
  1. HUMIRA [Suspect]
     Indication: RHEUMATOID ARTHRITIS
     Dosage: 40 MG, 1 IN 2 WK, SUBCUTANEOUS
     Route: 058
     Dates: start: 20040203
  2. ROFECOXIB [Concomitant]
  3. METHOTREXATE SODIUM [Concomitant]
  4. PREDNISONE [Concomitant]
  5. FAMOTIDINE [Concomitant]
  6. LISINOPRIL [Concomitant]
  7. FOLIC ACID [Concomitant]
  8. ASCORBIC ACID [Concomitant]
  9. ALENDRONATE SODIUM [Concomitant]
  10. CALCIUM [Concomitant]
  11. INFLIXIMAB [Concomitant]
  12. HYDROCHLORAQUIN [Concomitant]
  13. MULTI-VITAMINS [Concomitant]

REACTIONS (2)
  - INJECTION SITE BURNING [None]
  - INJECTION SITE PUSTULE [None]
